FAERS Safety Report 10033717 (Version 2)
Quarter: 2014Q2

REPORT INFORMATION
  Report Type: Spontaneous
  Country: US (occurrence: US)
  Receive Date: 20140325
  Receipt Date: 20140421
  Transmission Date: 20141212
  Serious: No
  Sender: FDA-Public Use
  Company Number: US-BIOGENIDEC-2014BI024272

PATIENT
  Sex: Female

DRUGS (4)
  1. TECFIDERA [Suspect]
     Indication: MULTIPLE SCLEROSIS
     Route: 048
     Dates: start: 201402
  2. TECFIDERA [Suspect]
     Indication: MULTIPLE SCLEROSIS
     Route: 048
     Dates: end: 20140308
  3. BACTRIM [Concomitant]
  4. BETASERON [Concomitant]

REACTIONS (7)
  - Heart rate increased [Unknown]
  - Chest pain [Unknown]
  - Back pain [Unknown]
  - Influenza [Unknown]
  - Urinary tract infection [Unknown]
  - Conjunctivitis [Unknown]
  - Hepatic enzyme increased [Unknown]
